FAERS Safety Report 22891938 (Version 3)
Quarter: 2024Q1

REPORT INFORMATION
  Report Type: Spontaneous
  Country: US (occurrence: US)
  Receive Date: 20230901
  Receipt Date: 20240131
  Transmission Date: 20240410
  Serious: No
  Sender: FDA-Public Use
  Company Number: US-AMGEN-USASP2023153149

PATIENT
  Age: 65 Year
  Sex: Female

DRUGS (2)
  1. REPATHA [Suspect]
     Active Substance: EVOLOCUMAB
     Indication: Low density lipoprotein decreased
     Dosage: 420 MILLIGRAM, QMO
     Route: 065
     Dates: start: 2022
  2. REPATHA [Suspect]
     Active Substance: EVOLOCUMAB
     Dosage: 420 MILLIGRAM, QMO
     Route: 065

REACTIONS (18)
  - Product preparation error [Unknown]
  - Incorrect dose administered [Unknown]
  - Drug delivery system malfunction [Unknown]
  - Discharge [Unknown]
  - Device power source issue [Unknown]
  - Burning sensation [Unknown]
  - Device issue [Unknown]
  - Device temperature issue [Unknown]
  - Device use error [Unknown]
  - Incorrect dose administered [Unknown]
  - Product communication issue [Unknown]
  - Patient dissatisfaction with treatment [Unknown]
  - Device malfunction [Not Recovered/Not Resolved]
  - Wrong technique in product usage process [Unknown]
  - Device failure [Unknown]
  - Drug dose omission by device [Unknown]
  - Wrong technique in device usage process [Unknown]
  - Off label use [Unknown]

NARRATIVE: CASE EVENT DATE: 20230827
